FAERS Safety Report 7961335-9 (Version None)
Quarter: 2011Q4

REPORT INFORMATION
  Report Type: 
  Country: None (occurrence: None)
  Receive Date: 20111207
  Receipt Date: 20111129
  Transmission Date: 20120403
  Serious: Yes (Death, Hospitalization)
  Sender: FDA-Public Use
  Company Number: JP-TEVA-311837ISR

PATIENT
  Age: 59 Year
  Sex: Male

DRUGS (2)
  1. FLUOROURACIL [Suspect]
     Indication: OESOPHAGEAL CARCINOMA
  2. CISPLATIN [Suspect]
     Indication: OESOPHAGEAL CARCINOMA

REACTIONS (1)
  - AORTO-OESOPHAGEAL FISTULA [None]
